FAERS Safety Report 14476803 (Version 1)
Quarter: 2018Q1

REPORT INFORMATION
  Report Type: Spontaneous
  Country: US (occurrence: US)
  Receive Date: 20180201
  Receipt Date: 20180201
  Transmission Date: 20180509
  Serious: No
  Sender: FDA-Public Use
  Company Number: US-009507513-1801USA005290

PATIENT
  Sex: Female

DRUGS (1)
  1. PREGNYL [Suspect]
     Active Substance: CHORIOGONADOTROPIN ALFA
     Indication: INFERTILITY FEMALE
     Dosage: STRENGTH: 10.000 UNITS; DOSE 10.000 UNITS, ONCE
     Route: 030
     Dates: start: 20170912

REACTIONS (2)
  - Hypoaesthesia [Recovered/Resolved]
  - Vomiting [Recovered/Resolved]
